FAERS Safety Report 19502085 (Version 1)
Quarter: 2021Q3

REPORT INFORMATION
  Report Type: Spontaneous
  Country: FR (occurrence: FR)
  Receive Date: 20210707
  Receipt Date: 20210707
  Transmission Date: 20211014
  Serious: Yes (Death, Life-Threatening)
  Sender: FDA-Public Use
  Company Number: FR-ACCORD-230710

PATIENT
  Age: 71 Year
  Sex: Male

DRUGS (3)
  1. TECENTRIQ [Suspect]
     Active Substance: ATEZOLIZUMAB
     Indication: SMALL CELL LUNG CANCER METASTATIC
     Dates: start: 20210521, end: 20210521
  2. CARBOPLATIN. [Suspect]
     Active Substance: CARBOPLATIN
     Indication: SMALL CELL LUNG CANCER METASTATIC
     Dates: start: 20210521, end: 20210521
  3. ETOPOSIDE MYLAN [Suspect]
     Active Substance: ETOPOSIDE
     Indication: SMALL CELL LUNG CANCER METASTATIC
     Dates: start: 20210521, end: 20210523

REACTIONS (1)
  - Tumour lysis syndrome [Fatal]

NARRATIVE: CASE EVENT DATE: 20210523
